FAERS Safety Report 7526155-8 (Version None)
Quarter: 2011Q2

REPORT INFORMATION
  Report Type: 
  Country: None (occurrence: None)
  Receive Date: 20110603
  Receipt Date: 20110603
  Transmission Date: 20111010
  Serious: Yes (Other)
  Sender: FDA-Public Use
  Company Number: None

PATIENT
  Age: 35 Year
  Sex: Male
  Weight: 83.9154 kg

DRUGS (1)
  1. SUBOXONE [Suspect]
     Indication: DRUG DEPENDENCE
     Dosage: 8MG/2MG ONCE DAILY SL
     Route: 060
     Dates: start: 20110412, end: 20110429

REACTIONS (3)
  - HEADACHE [None]
  - HOT FLUSH [None]
  - STOMATITIS [None]
